FAERS Safety Report 5420517-0 (Version None)
Quarter: 2007Q3

REPORT INFORMATION
  Report Type: 
  Country: None (occurrence: None)
  Receive Date: 20070821
  Receipt Date: 20060814
  Transmission Date: 20080115
  Serious: No
  Sender: FDA-Public Use
  Company Number: US-KINGPHARMUSA00001-K200601057

PATIENT

DRUGS (2)
  1. CYTOMEL [Suspect]
     Indication: BASEDOW'S DISEASE
     Dosage: 12.5 MCG, QD
     Route: 048
  2. SYNTHROID [Concomitant]
     Indication: BASEDOW'S DISEASE
     Dosage: 137 MCG, QD

REACTIONS (5)
  - ALOPECIA [None]
  - DRUG INEFFECTIVE [None]
  - FATIGUE [None]
  - HEART RATE INCREASED [None]
  - ONYCHOCLASIS [None]
